FAERS Safety Report 8244706-5 (Version None)
Quarter: 2012Q1

REPORT INFORMATION
  Report Type: 
  Country: None (occurrence: None)
  Receive Date: 20120329
  Receipt Date: 20110209
  Transmission Date: 20120608
  Serious: No
  Sender: FDA-Public Use
  Company Number: US-MYLANLABS-2011S1002724

PATIENT
  Age: 36 Year
  Sex: Male
  Weight: 70.31 kg

DRUGS (2)
  1. ROXICODONE [Concomitant]
     Indication: BREAKTHROUGH PAIN
     Dosage: Q4 -Q6 HOURS
  2. FENTANYL-100 [Suspect]
     Indication: BACK PAIN
     Dosage: Q 72 HOURS
     Route: 062
     Dates: start: 20110101, end: 20110101

REACTIONS (6)
  - DRUG INEFFECTIVE [None]
  - PAIN [None]
  - NAUSEA [None]
  - DRUG WITHDRAWAL SYNDROME [None]
  - DIARRHOEA [None]
  - RHINORRHOEA [None]
